FAERS Safety Report 20220211 (Version 1)
Quarter: 2021Q4

REPORT INFORMATION
  Report Type: Spontaneous
  Country: US (occurrence: US)
  Receive Date: 20211223
  Receipt Date: 20211223
  Transmission Date: 20220303
  Serious: Yes (Hospitalization)
  Sender: FDA-Public Use
  Company Number: US-ENDO PHARMACEUTICALS INC-2021-013595

PATIENT
  Age: 30 Year
  Sex: Female
  Weight: 56 kg

DRUGS (7)
  1. KETALAR [Suspect]
     Active Substance: KETAMINE HYDROCHLORIDE
     Indication: Complex regional pain syndrome
     Dosage: 0.18 MG/KG/HOUR, INFUSION (10 MG/H) HOSPITAL DAY (HD) 1
     Route: 065
  2. KETALAR [Suspect]
     Active Substance: KETAMINE HYDROCHLORIDE
     Dosage: UNK, INFUSION INCREASED TO 15 MG/HOUR ON HD 1
     Route: 065
  3. KETALAR [Suspect]
     Active Substance: KETAMINE HYDROCHLORIDE
     Dosage: UNK, INFUSION INCREASED TO 20 MG/HOUR ON HD 2
     Route: 065
  4. KETALAR [Suspect]
     Active Substance: KETAMINE HYDROCHLORIDE
     Dosage: INCREASED TO 0.45 MG/KG/HOUR, INFUSION (25 MG/H) ON HD 3
     Route: 065
  5. HYDROXYZINE                        /00058402/ [Concomitant]
     Indication: Anxiety
     Dosage: UNK UNKNOWN, PRN
     Route: 065
  6. DULOXETINE [Concomitant]
     Active Substance: DULOXETINE
     Indication: Product used for unknown indication
     Dosage: UNK UNKNOWN, UNKNOWN
     Route: 065
  7. BUPRENORPHINE AND NALOXONE [Concomitant]
     Active Substance: BUPRENORPHINE HYDROCHLORIDE\NALOXONE HYDROCHLORIDE
     Indication: Drug use disorder
     Dosage: UNK UNKNOWN, UNKNOWN
     Route: 065

REACTIONS (2)
  - Mania [Recovered/Resolved]
  - Off label use [Recovered/Resolved]
